FAERS Safety Report 24272724 (Version 3)
Quarter: 2024Q4

REPORT INFORMATION
  Report Type: Report from Study
  Country: TW (occurrence: TW)
  Receive Date: 20240902
  Receipt Date: 20241010
  Transmission Date: 20250115
  Serious: Yes (Hospitalization)
  Sender: BIOGEN
  Company Number: TW-BIOGEN-2024BI01280261

PATIENT
  Age: 37 Year
  Sex: Male
  Weight: 85 kg

DRUGS (4)
  1. TYSABRI [Suspect]
     Active Substance: NATALIZUMAB
     Indication: Multiple sclerosis
     Route: 050
     Dates: start: 20240516, end: 20240815
  2. TYSABRI [Suspect]
     Active Substance: NATALIZUMAB
     Route: 050
  3. FAMOTIDINE [Concomitant]
     Active Substance: FAMOTIDINE
     Indication: Multiple sclerosis relapse
     Route: 050
     Dates: start: 20240831, end: 20240912
  4. PREDNISOLONE [Concomitant]
     Active Substance: PREDNISOLONE
     Indication: Multiple sclerosis relapse
     Route: 050
     Dates: start: 20240831, end: 20240912

REACTIONS (1)
  - Multiple sclerosis relapse [Recovered/Resolved]

NARRATIVE: CASE EVENT DATE: 20240825
